FAERS Safety Report 12579870 (Version 12)
Quarter: 2018Q3

REPORT INFORMATION
  Report Type: Report from Study
  Country: PA (occurrence: PA)
  Receive Date: 20160721
  Receipt Date: 20180921
  Transmission Date: 20181010
  Serious: Yes (Hospitalization, Other)
  Sender: FDA-Public Use
  Company Number: PHHY2016PA099776

PATIENT
  Age: 58 Year
  Sex: Male
  Weight: 81.63 kg

DRUGS (10)
  1. SIMVASTATIN. [Concomitant]
     Active Substance: SIMVASTATIN
     Indication: PRODUCT USED FOR UNKNOWN INDICATION
     Dosage: 10 MG, BID
     Route: 065
  2. OXYCODONE HYDROCHLORIDE. [Suspect]
     Active Substance: OXYCODONE HYDROCHLORIDE
     Indication: PAIN
     Dosage: UNK
     Route: 065
  3. GILENYA [Suspect]
     Active Substance: FINGOLIMOD HYDROCHLORIDE
     Indication: MULTIPLE SCLEROSIS
     Dosage: 0.5 MG, QD
     Route: 065
     Dates: start: 20160506
  4. GILENYA [Suspect]
     Active Substance: FINGOLIMOD HYDROCHLORIDE
     Dosage: 0.5 MG, QD
     Route: 065
     Dates: start: 20170228
  5. CARBAMAZEPINE. [Suspect]
     Active Substance: CARBAMAZEPINE
     Indication: PRODUCT USED FOR UNKNOWN INDICATION
     Dosage: 200 MG, Q8H
     Route: 065
  6. AMLODIPINE [Suspect]
     Active Substance: AMLODIPINE BESYLATE
     Indication: HYPERTENSION
     Dosage: 1 DF, BID (ONE EVERY 12 HOURS)
     Route: 065
  7. GILENYA [Suspect]
     Active Substance: FINGOLIMOD HYDROCHLORIDE
     Dosage: 0.5 MG, QD
     Route: 065
     Dates: start: 20171025
  8. GILENYA [Suspect]
     Active Substance: FINGOLIMOD HYDROCHLORIDE
     Dosage: 0.5 MG, QD
     Route: 065
     Dates: start: 20180319
  9. ESCITALOPRAM [Suspect]
     Active Substance: ESCITALOPRAM OXALATE
     Indication: SLEEP DISORDER
     Dosage: 10 MG, QD
     Route: 065
  10. FENOFIBRATE. [Concomitant]
     Active Substance: FENOFIBRATE
     Indication: PRODUCT USED FOR UNKNOWN INDICATION
     Dosage: 250 MG, QN
     Route: 065

REACTIONS (59)
  - Multiple sclerosis relapse [Recovering/Resolving]
  - Asphyxia [Unknown]
  - Intervertebral disc disorder [Recovering/Resolving]
  - Seizure [Recovered/Resolved with Sequelae]
  - Muscle rigidity [Unknown]
  - Dysstasia [Unknown]
  - Visual impairment [Unknown]
  - Low density lipoprotein increased [Unknown]
  - Blood lactate dehydrogenase decreased [Unknown]
  - Seizure [Unknown]
  - Anaphylactic reaction [Unknown]
  - Myalgia [Unknown]
  - Hernia pain [Unknown]
  - Sleep disorder [Unknown]
  - Pain [Unknown]
  - Infection [Unknown]
  - Tonsillitis [Unknown]
  - Amnesia [Recovered/Resolved with Sequelae]
  - Alanine aminotransferase increased [Unknown]
  - Myopathy [Unknown]
  - Red cell distribution width increased [Unknown]
  - Red blood cell sedimentation rate increased [Unknown]
  - Choking [Unknown]
  - Muscle contractions involuntary [Unknown]
  - Speech disorder [Recovering/Resolving]
  - Memory impairment [Unknown]
  - Blood triglycerides increased [Unknown]
  - Fear [Unknown]
  - Plateletcrit decreased [Unknown]
  - Ileus paralytic [Unknown]
  - Neuropathy peripheral [Unknown]
  - Monocyte percentage increased [Unknown]
  - Asthenia [Unknown]
  - Intervertebral disc protrusion [Unknown]
  - Muscle spasticity [Unknown]
  - Intervertebral discitis [Unknown]
  - Dyskinesia [Unknown]
  - Neuralgia [Unknown]
  - Feeling abnormal [Unknown]
  - Eosinophil percentage increased [Unknown]
  - Red blood cell count decreased [Unknown]
  - Haemoglobin decreased [Unknown]
  - Nausea [Recovering/Resolving]
  - Heat stroke [Unknown]
  - Cold type haemolytic anaemia [Unknown]
  - Leukopenia [Unknown]
  - Mobility decreased [Unknown]
  - Blood pressure decreased [Unknown]
  - Somnolence [Unknown]
  - Granulocyte count decreased [Unknown]
  - Blood cholesterol increased [Unknown]
  - Cardiac disorder [Unknown]
  - Dehydration [Unknown]
  - Nuchal rigidity [Unknown]
  - Muscle strain [Unknown]
  - Malaise [Unknown]
  - Muscle disorder [Unknown]
  - Mean cell volume increased [Unknown]
  - Lethargy [Unknown]

NARRATIVE: CASE EVENT DATE: 20170218
